FAERS Safety Report 8301682-4 (Version None)
Quarter: 2012Q2

REPORT INFORMATION
  Report Type: 
  Country: None (occurrence: None)
  Receive Date: 20120420
  Receipt Date: 20120413
  Transmission Date: 20120825
  Serious: Yes (Hospitalization)
  Sender: FDA-Public Use
  Company Number: US-JNJFOC-20120400301

PATIENT
  Sex: Female
  Weight: 108.86 kg

DRUGS (10)
  1. OPANA [Concomitant]
     Route: 065
  2. GLYBURIDE [Concomitant]
     Route: 065
  3. LISINOPRIL [Concomitant]
     Route: 065
  4. FAMOTIDINE [Concomitant]
     Route: 065
  5. BISACODYL [Concomitant]
     Route: 065
  6. OYST CAL-D [Concomitant]
     Route: 065
  7. DURAGESIC-100 [Suspect]
     Indication: PAIN
     Route: 062
  8. LEXAPRO [Concomitant]
     Route: 065
  9. GABAPENTIN [Concomitant]
     Route: 065
  10. TOFRANIL-PM [Concomitant]
     Route: 065

REACTIONS (4)
  - FALL [None]
  - APPLICATION SITE REACTION [None]
  - PRODUCT QUALITY ISSUE [None]
  - LOWER LIMB FRACTURE [None]
